FAERS Safety Report 6593517-5 (Version None)
Quarter: 2010Q1

REPORT INFORMATION
  Report Type: 
  Country: None (occurrence: None)
  Receive Date: 20100222
  Receipt Date: 20090617
  Transmission Date: 20100710
  Serious: No
  Sender: FDA-Public Use
  Company Number: US-BRISTOL-MYERS SQUIBB COMPANY-14667679

PATIENT
  Age: 52 Year
  Sex: Female
  Weight: 55 kg

DRUGS (2)
  1. ORENCIA [Suspect]
     Indication: RHEUMATOID ARTHRITIS
     Dosage: STARTED ORENCIA 8-10 MONTHS AGO
  2. CATAFLAM [Concomitant]

REACTIONS (2)
  - ORAL CANDIDIASIS [None]
  - WHITE BLOOD CELL COUNT DECREASED [None]
